FAERS Safety Report 5231937-1 (Version None)
Quarter: 2007Q1

REPORT INFORMATION
  Report Type: 
  Country: None (occurrence: None)
  Receive Date: 20070202
  Receipt Date: 20070125
  Transmission Date: 20070707
  Serious: Yes (Disabling, Other)
  Sender: FDA-Public Use
  Company Number: 152214USA

PATIENT
  Age: 70 Year
  Sex: Male

DRUGS (4)
  1. FLUOROURACIL [Suspect]
     Indication: COLORECTAL CANCER METASTATIC
     Dosage: 410 MG BOLUS, CONTINUOUS INFUSION 2460, INTRAVENOUS (NOT OTHERWISE SPECIFIED)
     Route: 042
     Dates: start: 20070103, end: 20070103
  2. FOLINIC ACID [Suspect]
     Dosage: 350 MG
     Dates: start: 20070103, end: 20070103
  3. BEVACIZUMAB [Suspect]
     Indication: COLORECTAL CANCER METASTATIC
     Dosage: 420 MG, INTRAVENOUS (NOT OTHERWISE SPECIFIED)
     Route: 042
     Dates: start: 20070103, end: 20070103
  4. OXALIPLATIN [Suspect]
     Dosage: 103 MG, INTRAVENOUS (NOT OTHERWISE SPECIFIED)
     Route: 042
     Dates: start: 20070103, end: 20070103

REACTIONS (1)
  - DEAFNESS UNILATERAL [None]
